FAERS Safety Report 9539465 (Version 1)
Quarter: 2013Q3

REPORT INFORMATION
  Report Type: Spontaneous
  Country: TR (occurrence: None)
  Receive Date: 20130917
  Receipt Date: 20130917
  Transmission Date: 20140515
  Serious: Yes (Life-Threatening)
  Sender: FDA-Public Use
  Company Number: FK201304191

PATIENT
  Age: 37 Year
  Sex: Female

DRUGS (4)
  1. AMIODARONE HCL (MANUFACTURER UNKNOWN) (AMIODARONE HYDROCHLORIDE) [Suspect]
     Indication: ATRIAL FIBRILLATION
     Dosage: 5 MG/KG, LOADING DOSE OVER 1/2 HOUR, INTRAVENOUS (NOT OTHERWISE SPECIFIED)
  2. DILTIAZEM [Concomitant]
  3. METOPROLOL (METOPROLOL) [Concomitant]
  4. ACETYLSALICYLIC ACID 9ACETYLSALICYLIC ACID) [Concomitant]

REACTIONS (1)
  - Anaphylactic reaction [None]
